FAERS Safety Report 7526327-2 (Version None)
Quarter: 2011Q2

REPORT INFORMATION
  Report Type: 
  Country: None (occurrence: None)
  Receive Date: 20110606
  Receipt Date: 20110520
  Transmission Date: 20111010
  Serious: No
  Sender: FDA-Public Use
  Company Number: US-B.I. PHARMACEUTICALS,INC./RIDGEFIELD-2011-BP-13626BP

PATIENT
  Age: 83 Year
  Sex: Male

DRUGS (13)
  1. PRADAXA [Suspect]
     Indication: ATRIAL FIBRILLATION
     Dosage: 300 MG
     Route: 048
     Dates: start: 20110220
  2. ASPIRIN [Concomitant]
     Indication: ANTICOAGULANT THERAPY
     Dosage: 81 MG
  3. FISH OIL [Concomitant]
     Indication: VITAMIN SUPPLEMENTATION
  4. SOTALOL HCL [Concomitant]
     Indication: ARRHYTHMIA
     Dosage: 80 MG
     Route: 048
  5. HYTRIN [Concomitant]
     Indication: PROSTATOMEGALY
     Dosage: 10 MG
     Route: 048
  6. PROSCAR [Concomitant]
     Indication: PROSTATOMEGALY
     Dosage: 5 MG
     Route: 048
  7. DIOVAN [Concomitant]
     Indication: HYPERTENSION
     Dosage: 160 MG
     Route: 048
  8. CALCIUM CITRATE [Concomitant]
     Indication: VITAMIN SUPPLEMENTATION
  9. LASIX [Concomitant]
     Indication: HYPERTENSION
     Route: 048
  10. NORVASC [Concomitant]
     Indication: HYPERTENSION
     Dosage: 5 MG
     Route: 048
  11. OMEPRAZOLE [Concomitant]
     Indication: GASTROOESOPHAGEAL REFLUX DISEASE
     Dosage: 20 MG
     Route: 048
  12. POTASSIUM CHLORIDE [Concomitant]
     Indication: ELECTROLYTE SUBSTITUTION THERAPY
     Dosage: 20 MEQ
     Route: 048
  13. M.V.I. [Concomitant]
     Indication: VITAMIN SUPPLEMENTATION

REACTIONS (3)
  - OROPHARYNGEAL PAIN [None]
  - RASH MACULO-PAPULAR [None]
  - MELANOCYTIC NAEVUS [None]
